FAERS Safety Report 16991665 (Version 2)
Quarter: 2019Q4

REPORT INFORMATION
  Report Type: Report from Study
  Country: None (occurrence: US)
  Receive Date: 20191104
  Receipt Date: 20191219
  Transmission Date: 20200122
  Serious: Yes (Other)
  Sender: FDA-Public Use
  Company Number: US-ABBVIE-19K-163-2985270-00

PATIENT
  Age: 70 Year
  Sex: Female
  Weight: 83.99 kg

DRUGS (1)
  1. HUMIRA [Suspect]
     Active Substance: ADALIMUMAB
     Indication: CROHN^S DISEASE
     Route: 058
     Dates: start: 2014

REACTIONS (9)
  - Heavy exposure to ultraviolet light [Unknown]
  - Post procedural infection [Recovered/Resolved]
  - Blood cholesterol increased [Unknown]
  - Basal cell carcinoma [Not Recovered/Not Resolved]
  - Anxiety [Unknown]
  - Hypertension [Unknown]
  - Squamous cell carcinoma [Recovered/Resolved]
  - Secretion discharge [Not Recovered/Not Resolved]
  - Depression [Unknown]

NARRATIVE: CASE EVENT DATE: 201911
